FAERS Safety Report 8485455-8 (Version None)
Quarter: 2012Q2

REPORT INFORMATION
  Report Type: 
  Country: None (occurrence: None)
  Receive Date: 20120627
  Receipt Date: 20120627
  Transmission Date: 20120825
  Serious: No
  Sender: FDA-Public Use
  Company Number: None

PATIENT
  Sex: Female

DRUGS (2)
  1. HUMIRA [Suspect]
     Indication: HYPERCOAGULATION
     Dosage: OTHER
     Route: 046
  2. ENOXAPARIN SODIUM [Suspect]
     Dosage: OTHER
     Route: 050

REACTIONS (2)
  - ORAL MUCOSAL BLISTERING [None]
  - STOMATITIS [None]
